FAERS Safety Report 7471251-7 (Version None)
Quarter: 2011Q2

REPORT INFORMATION
  Report Type: 
  Country: None (occurrence: None)
  Receive Date: 20110510
  Receipt Date: 20100216
  Transmission Date: 20111010
  Serious: Yes (Other)
  Sender: FDA-Public Use
  Company Number: DE-GENENTECH-318278

PATIENT
  Sex: Female

DRUGS (1)
  1. LUCENTIS [Suspect]
     Indication: AGE-RELATED MACULAR DEGENERATION
     Route: 031

REACTIONS (5)
  - BLINDNESS [None]
  - VISUAL ACUITY REDUCED [None]
  - LIGAMENT SPRAIN [None]
  - RETINAL HAEMORRHAGE [None]
  - LIMB DISCOMFORT [None]
